FAERS Safety Report 10056509 (Version 1)
Quarter: 2014Q2

REPORT INFORMATION
  Report Type: Spontaneous
  Country: IT (occurrence: IT)
  Receive Date: 20140403
  Receipt Date: 20140403
  Transmission Date: 20141212
  Serious: Yes (Hospitalization)
  Sender: FDA-Public Use
  Company Number: IT-WATSON-2013-25417

PATIENT
  Age: 37 Year
  Sex: Female

DRUGS (12)
  1. TOPAMAX [Suspect]
     Indication: SUICIDE ATTEMPT
     Route: 048
     Dates: start: 20130705, end: 20130705
  2. XERISTAR [Suspect]
     Indication: SUICIDE ATTEMPT
     Route: 048
     Dates: start: 20130705, end: 20130705
  3. DIAZEPAM (UNKNOWN) [Suspect]
     Indication: SUICIDE ATTEMPT
     Dosage: 20 ML, TOTAL
     Route: 048
     Dates: start: 20130705, end: 20130705
  4. PARACETAMOL  (UNKNOWN) [Suspect]
     Indication: SUICIDE ATTEMPT
     Route: 048
     Dates: start: 20130705, end: 20130705
  5. ACETYLCYSTEINE [Concomitant]
     Indication: ADVERSE EVENT
     Route: 065
  6. NATECAL D3 [Concomitant]
     Indication: PRODUCT USED FOR UNKNOWN INDICATION
     Route: 065
  7. FERROGRAD [Concomitant]
     Indication: PRODUCT USED FOR UNKNOWN INDICATION
     Route: 065
  8. FOLINA [Concomitant]
     Indication: PRODUCT USED FOR UNKNOWN INDICATION
     Route: 065
  9. DEPAKIN CHRONO [Concomitant]
     Indication: PRODUCT USED FOR UNKNOWN INDICATION
     Route: 065
  10. CIPRALEX [Concomitant]
     Indication: PRODUCT USED FOR UNKNOWN INDICATION
     Route: 065
  11. PANTOPRAZOLE [Concomitant]
     Indication: PRODUCT USED FOR UNKNOWN INDICATION
     Route: 065
  12. SODIUM VALPROATE [Concomitant]
     Indication: PRODUCT USED FOR UNKNOWN INDICATION
     Route: 065

REACTIONS (2)
  - Suicide attempt [Recovered/Resolved]
  - Toxicity to various agents [Recovered/Resolved]
